FAERS Safety Report 11993751 (Version 4)
Quarter: 2017Q4

REPORT INFORMATION
  Report Type: Spontaneous
  Country: JP (occurrence: JP)
  Receive Date: 20160203
  Receipt Date: 20171009
  Transmission Date: 20180320
  Serious: Yes (Hospitalization)
  Sender: FDA-Public Use
  Company Number: JP-ABBVIE-16P-087-1550792-00

PATIENT
  Age: 74 Year
  Sex: Female

DRUGS (7)
  1. LITHIUM. [Concomitant]
     Active Substance: LITHIUM
     Indication: PRODUCT USED FOR UNKNOWN INDICATION
  2. PEROSPIRONE [Concomitant]
     Active Substance: PEROSPIRONE
     Indication: PRODUCT USED FOR UNKNOWN INDICATION
  3. DONEPEZIL HYDROCHLORIDE. [Concomitant]
     Active Substance: DONEPEZIL HYDROCHLORIDE
     Indication: PRODUCT USED FOR UNKNOWN INDICATION
  4. VALPROIC ACID. [Suspect]
     Active Substance: VALPROIC ACID
     Indication: BIPOLAR DISORDER
     Route: 065
  5. VALPROIC ACID. [Suspect]
     Active Substance: VALPROIC ACID
     Route: 065
  6. VALPROIC ACID. [Suspect]
     Active Substance: VALPROIC ACID
     Route: 065
  7. VALPROIC ACID. [Suspect]
     Active Substance: VALPROIC ACID
     Indication: TREMOR
     Route: 065

REACTIONS (7)
  - Musculoskeletal stiffness [Recovered/Resolved]
  - Cognitive disorder [Recovered/Resolved]
  - Intention tremor [Recovered/Resolved]
  - Parkinsonism [Recovering/Resolving]
  - Gait disturbance [Recovered/Resolved]
  - Tremor [Recovering/Resolving]
  - Resting tremor [Recovered/Resolved]
